FAERS Safety Report 4825305-1 (Version None)
Quarter: 2005Q4

REPORT INFORMATION
  Report Type: 
  Country: None (occurrence: None)
  Receive Date: 20051110
  Receipt Date: 20051110
  Transmission Date: 20060501
  Serious: Yes (Other)
  Sender: FDA-Public Use
  Company Number: None

PATIENT
  Sex: Male

DRUGS (2)
  1. ENALAPRIL 2.5 MG [Suspect]
     Indication: BLOOD PRESSURE INADEQUATELY CONTROLLED
     Dosage: TWO PO Q AM ONE Q PM
     Route: 048
  2. ENALAPRIL 2.5 MG [Suspect]
     Indication: CEREBROVASCULAR ACCIDENT
     Dosage: TWO PO Q AM ONE Q PM
     Route: 048

REACTIONS (4)
  - CONVULSION [None]
  - GLUCOSE TOLERANCE IMPAIRED [None]
  - HYPERTENSION [None]
  - THERAPEUTIC RESPONSE UNEXPECTED WITH DRUG SUBSTITUTION [None]
